FAERS Safety Report 21747219 (Version 1)
Quarter: 2022Q4

REPORT INFORMATION
  Report Type: Spontaneous
  Country: US (occurrence: US)
  Receive Date: 20221219
  Receipt Date: 20221219
  Transmission Date: 20230113
  Serious: No
  Sender: FDA-Public Use
  Company Number: US-ORGANON-O2212USA001145

PATIENT
  Age: 74 Year
  Sex: Male
  Weight: 58.957 kg

DRUGS (3)
  1. DULERA [Suspect]
     Active Substance: FORMOTEROL FUMARATE DIHYDRATE\MOMETASONE FUROATE
     Indication: Chronic obstructive pulmonary disease
     Dosage: TWO PUFFS TWICE DAILY;120 DOSE INHALER
     Dates: start: 20221212
  2. SPIRIVA [Concomitant]
     Active Substance: TIOTROPIUM BROMIDE MONOHYDRATE
     Dosage: UNK, QD
  3. ALBUTEROL SULFATE [Concomitant]
     Active Substance: ALBUTEROL SULFATE
     Dosage: RESCUE INHALER; AS NEEDED

REACTIONS (6)
  - Dyspnoea [Not Recovered/Not Resolved]
  - Device malfunction [Unknown]
  - Poor quality device used [Unknown]
  - Product dose omission issue [Unknown]
  - Circumstance or information capable of leading to medication error [Unknown]
  - Wrong technique in product usage process [Unknown]

NARRATIVE: CASE EVENT DATE: 20221201
